FAERS Safety Report 21970464 (Version 1)
Quarter: 2023Q1

REPORT INFORMATION
  Report Type: Spontaneous
  Country: CN (occurrence: CN)
  Receive Date: 20230209
  Receipt Date: 20230209
  Transmission Date: 20230418
  Serious: Yes (Other)
  Sender: FDA-Public Use
  Company Number: None

PATIENT
  Age: 35 Year
  Sex: Female
  Weight: 50.2 kg

DRUGS (3)
  1. METRONIDAZOLE [Suspect]
     Active Substance: METRONIDAZOLE
     Indication: Appendicitis
     Dosage: 2 GRAM (INFUSED WITH ABOUT 90 ML), ONCE DAILY (DOSAGE FORM: INJECTION)
     Route: 041
     Dates: start: 20230130, end: 20230130
  2. SODIUM CHLORIDE [Suspect]
     Active Substance: SODIUM CHLORIDE
     Indication: Medication dilution
     Dosage: 100 ML, TWICE DAILY
     Route: 041
     Dates: start: 20230130
  3. CEFUROXIME [Suspect]
     Active Substance: CEFUROXIME
     Dosage: 1.5 G, TWICE DAILY DILUTED WIH 100 ML 0.9% NACL
     Route: 041
     Dates: start: 20230130

REACTIONS (2)
  - Papule [Recovering/Resolving]
  - Pruritus [Recovered/Resolved]

NARRATIVE: CASE EVENT DATE: 20230130
